FAERS Safety Report 10021224 (Version 1)
Quarter: 2014Q1

REPORT INFORMATION
  Report Type: Spontaneous
  Country: US (occurrence: US)
  Receive Date: 20140319
  Receipt Date: 20140319
  Transmission Date: 20141002
  Serious: No
  Sender: FDA-Public Use
  Company Number: US-009507513-1403USA003048

PATIENT
  Sex: Male

DRUGS (3)
  1. REBETOL [Suspect]
     Indication: HEPATITIS C
     Dosage: 800 MG, BID
     Route: 048
     Dates: start: 20140305
  2. PEGASYS [Suspect]
     Indication: HEPATITIS C
     Dosage: 180 MICROGRAM, QW
     Route: 058
     Dates: start: 20140305
  3. COPEGUS [Suspect]
     Dosage: 800 MG, UNK

REACTIONS (2)
  - Pruritus generalised [Unknown]
  - Eye pruritus [Unknown]
